FAERS Safety Report 4968774-9 (Version None)
Quarter: 2006Q2

REPORT INFORMATION
  Report Type: 
  Country: None (occurrence: None)
  Receive Date: 20060411
  Receipt Date: 20060104
  Transmission Date: 20061013
  Serious: Yes (Hospitalization)
  Sender: FDA-Public Use
  Company Number: GBWYE276104JAN06

PATIENT
  Sex: Male
  Weight: 111 kg

DRUGS (9)
  1. ENBREL [Suspect]
     Indication: RHEUMATOID ARTHRITIS
     Route: 058
     Dates: start: 20040708
  2. SULFASALAZINE [Concomitant]
     Dosage: UNKNOWN
  3. ALLOPURINOL [Concomitant]
     Dosage: UNKNOWN
  4. CO-PROXAMOL [Concomitant]
     Dosage: UNKNOWN
  5. DICLOFENAC [Concomitant]
     Dosage: UNKNOWN
  6. FOLIC ACID [Concomitant]
     Dosage: UNKNOWN
  7. LANSOPRAZOLE [Concomitant]
     Dosage: UNKNOWN
  8. TRAMADOL HCL [Concomitant]
     Dosage: UNKNOWN
  9. METHOTREXATE [Concomitant]

REACTIONS (3)
  - LOWER RESPIRATORY TRACT INFECTION [None]
  - RIB FRACTURE [None]
  - WHITE BLOOD CELL COUNT INCREASED [None]
